FAERS Safety Report 13260668 (Version 1)
Quarter: 2017Q1

REPORT INFORMATION
  Report Type: Not Available
  Country: None (occurrence: US)
  Receive Date: 20170222
  Receipt Date: 20170222
  Transmission Date: 20170428
  Serious: No
  Sender: FDA-Public Use
  Company Number: US-AKORN-49825

PATIENT

DRUGS (1)
  1. IC-GREEN [Suspect]
     Active Substance: INDOCYANINE GREEN

REACTIONS (2)
  - Drug ineffective [Recovered/Resolved]
  - Immune tolerance induction [Recovered/Resolved]
